FAERS Safety Report 7297747-9 (Version None)
Quarter: 2011Q1

REPORT INFORMATION
  Report Type: 
  Country: None (occurrence: None)
  Receive Date: 20110214
  Receipt Date: 20110214
  Transmission Date: 20110831
  Serious: Yes (Other)
  Sender: FDA-Public Use
  Company Number: None

PATIENT
  Sex: Male
  Weight: 167.8309 kg

DRUGS (4)
  1. ONGLYZA [Suspect]
     Indication: TYPE 2 DIABETES MELLITUS
     Dosage: 5MG 1 PO
     Route: 048
     Dates: start: 20110119, end: 20110213
  2. BENICAR HCT [Concomitant]
  3. METFORMIN [Concomitant]
  4. ALLEGRA [Concomitant]

REACTIONS (8)
  - ANXIETY [None]
  - ABDOMINAL PAIN UPPER [None]
  - CONSTIPATION [None]
  - PANIC ATTACK [None]
  - HEADACHE [None]
  - IRRITABLE BOWEL SYNDROME [None]
  - PROSTATOMEGALY [None]
  - NIGHTMARE [None]
